FAERS Safety Report 9515980 (Version 2)
Quarter: 2013Q4

REPORT INFORMATION
  Report Type: Report from Study
  Country: US (occurrence: US)
  Receive Date: 20130911
  Receipt Date: 20131218
  Transmission Date: 20140711
  Serious: Yes (Hospitalization, Other)
  Sender: FDA-Public Use
  Company Number: US-SANOFI-AVENTIS-2013SA089718

PATIENT
  Sex: Male

DRUGS (1)
  1. AUBAGIO [Suspect]
     Indication: MULTIPLE SCLEROSIS
     Dosage: PRODUCT STARTED 5 MONTHS AGO
     Route: 048
     Dates: start: 20130329, end: 201308

REACTIONS (3)
  - Muscle spasticity [Unknown]
  - Balance disorder [Unknown]
  - Multiple sclerosis relapse [Unknown]
